FAERS Safety Report 7545947-2 (Version None)
Quarter: 2011Q2

REPORT INFORMATION
  Report Type: 
  Country: None (occurrence: None)
  Receive Date: 20110607
  Receipt Date: 20110523
  Transmission Date: 20111010
  Serious: Yes (Death)
  Sender: FDA-Public Use
  Company Number: 2011-226

PATIENT
  Sex: Male

DRUGS (3)
  1. CLOZAPINE [Suspect]
     Dosage: 300 MG, QD, ORAL
     Route: 048
  2. LACTULOSE [Concomitant]
  3. BENZTROPINE MESYLATE [Concomitant]

REACTIONS (1)
  - MYOCARDITIS [None]
